FAERS Safety Report 20584458 (Version 7)
Quarter: 2023Q2

REPORT INFORMATION
  Report Type: Report from Study
  Country: DE (occurrence: None)
  Receive Date: 20220311
  Receipt Date: 20230524
  Transmission Date: 20230722
  Serious: Yes (Hospitalization)
  Sender: FDA-Public Use
  Company Number: DE-ROCHE-3039454

PATIENT
  Age: 51 Year
  Sex: Female
  Weight: 73 kg

DRUGS (13)
  1. ATEZOLIZUMAB [Suspect]
     Active Substance: ATEZOLIZUMAB
     Indication: Triple negative breast cancer
     Dosage: MOST RECENT DOSE: 01/FEB/2022, 22/FEB/2022
     Route: 041
     Dates: start: 20210907
  2. PACLITAXEL [Suspect]
     Active Substance: PACLITAXEL
     Indication: Triple negative breast cancer
     Dosage: MOST RECENT DOSE: 14/DEC/2021
     Route: 042
     Dates: start: 20210928
  3. CARBOPLATIN [Suspect]
     Active Substance: CARBOPLATIN
     Indication: Triple negative breast cancer
     Dosage: MOST RECENT DOSE: 14/DEC/2021
     Route: 042
     Dates: start: 20210928
  4. EPIRUBICIN [Suspect]
     Active Substance: EPIRUBICIN
     Indication: Triple negative breast cancer
     Dosage: DATE OF LAST DOSE PRIOR TO SAE: 01/FEB/2022, 22/FEB/2022
     Route: 042
     Dates: start: 20211221
  5. CYCLOPHOSPHAMIDE [Suspect]
     Active Substance: CYCLOPHOSPHAMIDE
     Indication: Triple negative breast cancer
     Dosage: MOST RECENT DOSE: 01/FEB/2022, 22/FEB/2022
     Route: 042
     Dates: start: 20211221
  6. CLINDAMYCIN [Concomitant]
     Active Substance: CLINDAMYCIN
     Dates: start: 20210918, end: 20211002
  7. CLINDAMYCIN [Concomitant]
     Active Substance: CLINDAMYCIN
     Dates: start: 20220407, end: 20220411
  8. CLINDAMYCIN [Concomitant]
     Active Substance: CLINDAMYCIN
     Dates: start: 20220303, end: 20220309
  9. CLINDAMYCIN [Concomitant]
     Active Substance: CLINDAMYCIN
     Dates: start: 20220210, end: 20220212
  10. LEVOTHYROXINE SODIUM [Concomitant]
     Active Substance: LEVOTHYROXINE SODIUM
     Dates: start: 2021
  11. LEVOTHYROXINE SODIUM [Concomitant]
     Active Substance: LEVOTHYROXINE SODIUM
     Dates: start: 2021
  12. FILGRASTIM [Concomitant]
     Active Substance: FILGRASTIM
     Dosage: 30 MU
     Dates: start: 20211005
  13. FERRO-SANOL DUODENAL [Concomitant]
     Active Substance: FERROUS GLYCINE SULFATE
     Dates: start: 20211112

REACTIONS (4)
  - Blood creatinine increased [Recovered/Resolved]
  - General physical health deterioration [Recovered/Resolved]
  - Pancytopenia [Recovered/Resolved]
  - Wound infection [Recovered/Resolved]

NARRATIVE: CASE EVENT DATE: 20220201
